FAERS Safety Report 8102525-4 (Version None)
Quarter: 2012Q1

REPORT INFORMATION
  Report Type: 
  Country: None (occurrence: None)
  Receive Date: 20120201
  Receipt Date: 20120121
  Transmission Date: 20120608
  Serious: Yes (Hospitalization)
  Sender: FDA-Public Use
  Company Number: US-BAYER-2011-075229

PATIENT
  Age: 39 Year
  Sex: Female
  Weight: 59 kg

DRUGS (7)
  1. PLAVIX [Concomitant]
     Indication: CARDIAC DISORDER
     Dosage: UNK
     Dates: start: 20080101, end: 20090101
  2. ZOCOR [Concomitant]
     Indication: CARDIAC DISORDER
     Dosage: UNK
     Dates: start: 20080101
  3. ASPIRIN [Concomitant]
     Indication: CARDIAC DISORDER
     Dosage: UNK
     Dates: start: 20080101
  4. TOPROL-XL [Concomitant]
     Indication: CARDIAC DISORDER
     Dosage: UNK
     Dates: start: 20080101
  5. LEXAPRO [Concomitant]
     Dosage: UNK
     Dates: start: 20080829
  6. YASMIN [Suspect]
     Dosage: UNK
     Dates: start: 20080201, end: 20080801
  7. ASACOL [Concomitant]
     Dosage: UNK
     Dates: start: 20080829

REACTIONS (3)
  - INJURY [None]
  - PULMONARY EMBOLISM [None]
  - MYOCARDIAL INFARCTION [None]
